FAERS Safety Report 7274784-1 (Version None)
Quarter: 2011Q1

REPORT INFORMATION
  Report Type: 
  Country: None (occurrence: None)
  Receive Date: 20110128
  Receipt Date: 20110120
  Transmission Date: 20110831
  Serious: Yes (Other)
  Sender: FDA-Public Use
  Company Number: 2009SP020105

PATIENT
  Age: 63 Year
  Sex: Male
  Weight: 85 kg

DRUGS (6)
  1. AERIUS [Concomitant]
  2. DEXERYL [Concomitant]
  3. PEG-INTRON [Suspect]
     Indication: HEPATITIS C
     Dosage: 45 MCG; QW; SC
     Route: 058
     Dates: start: 20070621
  4. RIBAVIRIN [Suspect]
     Indication: HEPATITIS C
     Dosage: 1000 MG; QD; PO
     Route: 048
     Dates: start: 20070621
  5. DIPROSONE [Concomitant]
  6. ATARAX [Concomitant]

REACTIONS (7)
  - DERMATITIS [None]
  - DRY SKIN [None]
  - SKIN HYPERPIGMENTATION [None]
  - PRURITUS [None]
  - RASH PAPULAR [None]
  - INFLAMMATION [None]
  - DISORDER OF ORBIT [None]
